FAERS Safety Report 25678836 (Version 1)
Quarter: 2025Q3

REPORT INFORMATION
  Report Type: Spontaneous
  Country: CN (occurrence: CN)
  Receive Date: 20250814
  Receipt Date: 20250814
  Transmission Date: 20251020
  Serious: Yes (Hospitalization)
  Sender: BEIGENE
  Company Number: CN-BEIGENE-BGN-2025-013086

PATIENT
  Age: 65 Year

DRUGS (4)
  1. TISLELIZUMAB [Suspect]
     Active Substance: TISLELIZUMAB
     Indication: Squamous cell carcinoma of lung
  2. TISLELIZUMAB [Suspect]
     Active Substance: TISLELIZUMAB
  3. PACLITAXEL [Concomitant]
     Active Substance: PACLITAXEL
     Indication: Squamous cell carcinoma of lung
  4. NEDAPLATIN [Concomitant]
     Active Substance: NEDAPLATIN
     Indication: Squamous cell carcinoma of lung

REACTIONS (3)
  - Myelitis [Recovering/Resolving]
  - Neuropathy peripheral [Recovering/Resolving]
  - Demyelination [Recovering/Resolving]
